FAERS Safety Report 18498339 (Version 1)
Quarter: 2020Q4

REPORT INFORMATION
  Report Type: Report from Study
  Country: ES (occurrence: ES)
  Receive Date: 20201112
  Receipt Date: 20201112
  Transmission Date: 20210114
  Serious: Yes (Death, Other)
  Sender: FDA-Public Use
  Company Number: ES-TEVA-2020-ES-1847416

PATIENT
  Age: 90 Year
  Sex: Female

DRUGS (8)
  1. LEVOFLOXACINO (2791A) [Suspect]
     Active Substance: LEVOFLOXACIN
     Indication: COVID-19 PNEUMONIA
     Dosage: UNIT DOSE 500MG
     Route: 042
     Dates: start: 20200831
  2. AZITROMICINA 500 MG COMPRIMIDO [Suspect]
     Active Substance: AZITHROMYCIN
     Indication: COVID-19 PNEUMONIA
     Dosage: UNIT DOSE 500MG
     Route: 048
     Dates: start: 20200831, end: 20200902
  3. REMDESIVIR (10009A) [Suspect]
     Active Substance: REMDESIVIR
     Indication: COVID-19 PNEUMONIA
     Dosage: 200 / MG THE FIRST DAY AND 100 MG THE REMAINING 4 DAYS
     Route: 042
     Dates: start: 20200831, end: 20200904
  4. OMEPRAZOL (2141A) [Suspect]
     Active Substance: OMEPRAZOLE
     Dosage: 1 AMPOULE DAILY
     Route: 042
     Dates: start: 20200831
  5. CLEXANE 4.000 UI (40 MG)/ 0,4 ML  SOLUCION INYECTABLE EN JERINGA PRECA [Suspect]
     Active Substance: ENOXAPARIN SODIUM
     Dosage: 1-0-0
     Route: 058
     Dates: start: 20200831
  6. CEFTRIAXONA (501A) [Suspect]
     Active Substance: CEFTRIAXONE
     Indication: COVID-19 PNEUMONIA
     Dosage: UNIT DOSE 2GM
     Route: 042
     Dates: start: 20200831
  7. SEGURIL [Suspect]
     Active Substance: FUROSEMIDE
     Dosage: 1 DOSAGE FORMS DAILY; 1-0-0
     Route: 048
     Dates: start: 20200831
  8. DEXAMETASONA (722A) [Suspect]
     Active Substance: DEXAMETHASONE
     Indication: COVID-19 PNEUMONIA
     Dosage: UNIT DOSE 6MG
     Route: 042
     Dates: start: 20200831

REACTIONS (2)
  - Acute kidney injury [Fatal]
  - Agitation [Not Recovered/Not Resolved]

NARRATIVE: CASE EVENT DATE: 202009
